FAERS Safety Report 18495423 (Version 1)
Quarter: 2020Q4

REPORT INFORMATION
  Report Type: Spontaneous
  Country: US (occurrence: US)
  Receive Date: 20201112
  Receipt Date: 20201112
  Transmission Date: 20210114
  Serious: Yes (Death, Other)
  Sender: FDA-Public Use
  Company Number: US-HIKMA PHARMACEUTICALS USA INC.-US-H14001-20-05035

PATIENT
  Age: 66 Year
  Sex: Female

DRUGS (2)
  1. NOREPINEPHRINE. [Suspect]
     Active Substance: NOREPINEPHRINE
     Dosage: 70 MCG/MIN
     Route: 042
  2. NOREPINEPHRINE. [Suspect]
     Active Substance: NOREPINEPHRINE
     Indication: PRODUCT USED FOR UNKNOWN INDICATION
     Dosage: 10 MCG/MIN
     Route: 042

REACTIONS (5)
  - Stress cardiomyopathy [Fatal]
  - Accidental overdose [Unknown]
  - Arrhythmia [Fatal]
  - Hypotension [Unknown]
  - Arteriospasm coronary [Unknown]
